FAERS Safety Report 23586516 (Version 1)
Quarter: 2024Q1

REPORT INFORMATION
  Report Type: Spontaneous
  Country: FR (occurrence: FR)
  Receive Date: 20240301
  Receipt Date: 20240301
  Transmission Date: 20240410
  Serious: Yes (Hospitalization, Other)
  Sender: FDA-Public Use
  Company Number: None

PATIENT
  Age: 81 Year
  Sex: Male

DRUGS (8)
  1. AMOXICILLIN [Suspect]
     Active Substance: AMOXICILLIN
     Indication: Superinfection bacterial
     Dosage: AMOXICILLINE
     Route: 048
     Dates: start: 20230405, end: 20230409
  2. BAVENCIO [Suspect]
     Active Substance: AVELUMAB
     Indication: Transitional cell carcinoma
     Dosage: TIME INTERVAL: CYCLICAL
     Route: 042
     Dates: start: 20210608, end: 20230314
  3. ESIDREX [Concomitant]
     Active Substance: HYDROCHLOROTHIAZIDE
     Indication: Product used for unknown indication
  4. PERINDOPRIL [Concomitant]
     Active Substance: PERINDOPRIL
     Indication: Product used for unknown indication
  5. KARDEGIC [Concomitant]
     Active Substance: ASPIRIN DL-LYSINE
     Indication: Product used for unknown indication
  6. PAXLOVID [Suspect]
     Active Substance: NIRMATRELVIR\RITONAVIR
     Indication: COVID-19
     Dosage: 1 TAB NIRMATELVIR (150 MG) / 1 TAB RITONAVIR (100 MG) / D
     Route: 048
     Dates: start: 20230405, end: 20230410
  7. DILTIAZEM HYDROCHLORIDE [Concomitant]
     Active Substance: DILTIAZEM HYDROCHLORIDE
     Indication: Product used for unknown indication
  8. LEVOTHYROXINE [Concomitant]
     Active Substance: LEVOTHYROXINE\LEVOTHYROXINE SODIUM
     Indication: Product used for unknown indication

REACTIONS (2)
  - Evans syndrome [Recovering/Resolving]
  - Neutropenia [Recovered/Resolved]

NARRATIVE: CASE EVENT DATE: 20230417
